FAERS Safety Report 8609647-X (Version None)
Quarter: 2012Q3

REPORT INFORMATION
  Report Type: 
  Country: None (occurrence: None)
  Receive Date: 20120821
  Receipt Date: 20120813
  Transmission Date: 20120928
  Serious: Yes (Hospitalization)
  Sender: FDA-Public Use
  Company Number: US-ACTELION-A-US2012-65952

PATIENT
  Age: 64 Year
  Sex: Male

DRUGS (5)
  1. CIALIS [Concomitant]
  2. REMODULIN [Concomitant]
  3. ADCIRCA [Concomitant]
  4. HEPARIN [Concomitant]
  5. TRACLEER [Suspect]
     Indication: PULMONARY ARTERIAL HYPERTENSION
     Dosage: UNK
     Route: 048

REACTIONS (3)
  - INFECTION [None]
  - OSTEOMYELITIS [None]
  - CATHETER PLACEMENT [None]
